FAERS Safety Report 9172745 (Version 1)
Quarter: 2013Q1

REPORT INFORMATION
  Report Type: Spontaneous
  Country: US (occurrence: US)
  Receive Date: 20130319
  Receipt Date: 20130319
  Transmission Date: 20140127
  Serious: Yes (Hospitalization, Other)
  Sender: FDA-Public Use
  Company Number: US-009507513-0803USA02596

PATIENT
  Sex: Female

DRUGS (3)
  1. VIOXX [Suspect]
     Dosage: 25 MG, QD
     Route: 048
     Dates: start: 1996, end: 2004
  2. VIOXX [Suspect]
     Dosage: 25 MG, BID
     Route: 048
  3. VIOXX [Suspect]
     Dosage: 50 MG, UNK
     Route: 048
     Dates: start: 1996, end: 2004

REACTIONS (20)
  - Myocardial infarction [Unknown]
  - Chest pain [Unknown]
  - Cardiac disorder [Unknown]
  - Blood urine present [Unknown]
  - Uterine inflammation [Unknown]
  - Hydrometra [Unknown]
  - Respiratory tract infection [Unknown]
  - Rheumatoid arthritis [Unknown]
  - Adverse event [Unknown]
  - Chest pain [Unknown]
  - Pain in extremity [Unknown]
  - Chest pain [Unknown]
  - Coronary artery disease [Unknown]
  - Cardiac valve disease [Unknown]
  - Cardiomyopathy [Unknown]
  - Arrhythmia [Unknown]
  - Adverse event [Unknown]
  - Cardiac failure congestive [Unknown]
  - Hypertension [Unknown]
  - Dyspepsia [Unknown]
